FAERS Safety Report 6578057-1 (Version None)
Quarter: 2010Q1

REPORT INFORMATION
  Report Type: 
  Country: None (occurrence: None)
  Receive Date: 20100211
  Receipt Date: 20100203
  Transmission Date: 20100710
  Serious: Yes (Death)
  Sender: FDA-Public Use
  Company Number: TR-ELI_LILLY_AND_COMPANY-TR201002001402

PATIENT
  Age: 54 Year
  Sex: Male

DRUGS (2)
  1. HUMULIN N [Suspect]
     Indication: DIABETES MELLITUS
     Dosage: UNK, 4/D
     Route: 058
  2. HUMULIN R [Suspect]
     Indication: DIABETES MELLITUS
     Dosage: UNK, 4/D
     Route: 058

REACTIONS (1)
  - MYOCARDIAL INFARCTION [None]
